FAERS Safety Report 17703432 (Version 1)
Quarter: 2020Q2

REPORT INFORMATION
  Report Type: Spontaneous
  Country: FR (occurrence: FR)
  Receive Date: 20200424
  Receipt Date: 20200424
  Transmission Date: 20200714
  Serious: Yes (Hospitalization)
  Sender: FDA-Public Use
  Company Number: FR-ABBVIE-20K-056-3374457-00

PATIENT
  Age: 40 Year
  Sex: Female
  Weight: 100 kg

DRUGS (6)
  1. KALETRA [Suspect]
     Active Substance: LOPINAVIR\RITONAVIR
     Indication: CORONAVIRUS INFECTION
     Route: 048
     Dates: start: 20200401, end: 20200405
  2. ROCEPHINE [Suspect]
     Active Substance: CEFTRIAXONE SODIUM
     Indication: CORONAVIRUS INFECTION
     Route: 042
     Dates: start: 20200401, end: 20200405
  3. LOVENOX [Suspect]
     Active Substance: ENOXAPARIN SODIUM
     Indication: THROMBOSIS PROPHYLAXIS
     Route: 058
     Dates: start: 20200401, end: 20200406
  4. AMOXICILLINE [Concomitant]
     Active Substance: AMOXICILLIN
     Indication: CORONAVIRUS INFECTION
     Route: 048
     Dates: start: 20200405, end: 20200409
  5. PARACETAMOL [Concomitant]
     Active Substance: ACETAMINOPHEN
     Indication: PAIN
     Route: 048
     Dates: start: 20200401
  6. PREDNISOLONE. [Suspect]
     Active Substance: PREDNISOLONE
     Indication: CORONAVIRUS INFECTION
     Route: 048
     Dates: start: 20200401, end: 20200408

REACTIONS (1)
  - Hepatocellular injury [Not Recovered/Not Resolved]

NARRATIVE: CASE EVENT DATE: 20200405
